FAERS Safety Report 18860812 (Version 1)
Quarter: 2021Q1

REPORT INFORMATION
  Report Type: Spontaneous
  Country: FR (occurrence: FR)
  Receive Date: 20210208
  Receipt Date: 20210208
  Transmission Date: 20210420
  Serious: Yes (Death)
  Sender: FDA-Public Use
  Company Number: FR-PFIZER INC-2021095019

PATIENT
  Sex: Male
  Weight: 1 kg

DRUGS (1)
  1. DOSTINEX [Suspect]
     Active Substance: CABERGOLINE
     Indication: PITUITARY TUMOUR BENIGN
     Dosage: 1 DF, 1X/DAY
     Route: 064
     Dates: start: 20180107, end: 20180223

REACTIONS (3)
  - Maternal exposure timing unspecified [Fatal]
  - Hydrops foetalis [Fatal]
  - Multiple congenital abnormalities [Fatal]

NARRATIVE: CASE EVENT DATE: 20180613
